FAERS Safety Report 4765621-5 (Version None)
Quarter: 2005Q3

REPORT INFORMATION
  Report Type: 
  Country: None (occurrence: None)
  Receive Date: 20050906
  Receipt Date: 20050824
  Transmission Date: 20060218
  Serious: Yes (Other)
  Sender: FDA-Public Use
  Company Number: GBS050717862

PATIENT
  Sex: Female

DRUGS (4)
  1. YENTREVE (DULOXETINE HYDROCHLORIDE) [Suspect]
     Dosage: 80 MG
  2. ACTONEL [Concomitant]
  3. CALCICHEW D3 FORTE [Concomitant]
  4. ELTROXIN (LEVOTHYROXINE SODIUM) [Concomitant]

REACTIONS (4)
  - HALLUCINATION [None]
  - HYPONATRAEMIA [None]
  - OCULOGYRATION [None]
  - STUPOR [None]
